FAERS Safety Report 19749681 (Version 1)
Quarter: 2021Q3

REPORT INFORMATION
  Report Type: Spontaneous
  Country: US (occurrence: US)
  Receive Date: 20210826
  Receipt Date: 20210826
  Transmission Date: 20211014
  Serious: No
  Sender: FDA-Public Use
  Company Number: US-EISAI MEDICAL RESEARCH-EC-2021-097929

PATIENT
  Sex: Female

DRUGS (3)
  1. LENVIMA [Suspect]
     Active Substance: LENVATINIB
     Indication: ENDOMETRIAL CANCER
     Route: 048
     Dates: start: 20201019
  2. LENVIMA [Suspect]
     Active Substance: LENVATINIB
     Route: 048
     Dates: end: 20210615
  3. KEYTRUDA [Suspect]
     Active Substance: PEMBROLIZUMAB
     Indication: ENDOMETRIAL CANCER
     Route: 065
     Dates: start: 20201013, end: 20210608

REACTIONS (11)
  - Rash [Unknown]
  - Neuropathy peripheral [Unknown]
  - Myalgia [Unknown]
  - Arthralgia [Unknown]
  - Hypothyroidism [Unknown]
  - Impaired healing [Unknown]
  - Blood pressure increased [Unknown]
  - Weight decreased [Recovering/Resolving]
  - Memory impairment [Unknown]
  - Gastrointestinal inflammation [Unknown]
  - Photosensitivity reaction [Unknown]
